FAERS Safety Report 15105534 (Version 1)
Quarter: 2018Q3

REPORT INFORMATION
  Report Type: Spontaneous
  Country: FR (occurrence: FR)
  Receive Date: 20180704
  Receipt Date: 20180704
  Transmission Date: 20181010
  Serious: Yes (Other)
  Sender: FDA-Public Use
  Company Number: FR-SUN PHARMACEUTICAL INDUSTRIES LTD-2018R1-177136

PATIENT
  Sex: Female

DRUGS (2)
  1. ANASTROZOLE. [Suspect]
     Active Substance: ANASTROZOLE
     Indication: INVASIVE DUCTAL BREAST CARCINOMA
     Dosage: 1 DF, DAILY
     Route: 048
     Dates: start: 201403, end: 201503
  2. FEMARA [Suspect]
     Active Substance: LETROZOLE
     Indication: INVASIVE DUCTAL BREAST CARCINOMA
     Dosage: 1 DF, DAILY
     Route: 048
     Dates: start: 201503, end: 201610

REACTIONS (2)
  - Diarrhoea [Recovering/Resolving]
  - Malabsorption [Recovering/Resolving]

NARRATIVE: CASE EVENT DATE: 2014
